FAERS Safety Report 4705591-9 (Version None)
Quarter: 2005Q2

REPORT INFORMATION
  Report Type: 
  Country: None (occurrence: None)
  Receive Date: 20050629
  Receipt Date: 20040903
  Transmission Date: 20051028
  Serious: Yes (Death, Hospitalization)
  Sender: FDA-Public Use
  Company Number: FR90--11993

PATIENT
  Age: 54 Year
  Sex: Male

DRUGS (4)
  1. CISPLATIN [Suspect]
     Indication: OROPHARYNGEAL CANCER STAGE UNSPECIFIED
     Dosage: 100 MG/M**2 IV
     Route: 042
     Dates: start: 19990105, end: 19990105
  2. CISPLATIN [Suspect]
     Indication: OROPHARYNGEAL CANCER STAGE UNSPECIFIED
     Dosage: 100 MG/M**2 IV
     Route: 042
     Dates: start: 19990126, end: 19990126
  3. FLUOROURACIL [Suspect]
     Indication: OROPHARYNGEAL CANCER STAGE UNSPECIFIED
     Dosage: 1000 MG/M**2 IV
     Route: 042
     Dates: start: 19990105, end: 19990110
  4. FLUOROURACIL [Suspect]
     Indication: OROPHARYNGEAL CANCER STAGE UNSPECIFIED
     Dosage: 1000 MG/M**2 IV
     Route: 042
     Dates: start: 19990126, end: 19990131

REACTIONS (6)
  - CACHEXIA [None]
  - DYSPHAGIA [None]
  - HYPOTENSION [None]
  - NAUSEA [None]
  - STOMATITIS [None]
  - VOMITING [None]
